FAERS Safety Report 5925346-7 (Version None)
Quarter: 2008Q4

REPORT INFORMATION
  Report Type: 
  Country: None (occurrence: None)
  Receive Date: 20081021
  Receipt Date: 20081013
  Transmission Date: 20090506
  Serious: Yes (Other)
  Sender: FDA-Public Use
  Company Number: US-JNJCH-2008051965

PATIENT
  Age: 74 Year
  Sex: Female
  Weight: 86.2 kg

DRUGS (4)
  1. VISINE EYE DROPS [Suspect]
     Indication: DRY EYE
     Dosage: TEXT:OCCASIONAL
     Route: 047
  2. COUMADIN [Concomitant]
     Indication: BLOOD DISORDER
     Route: 065
  3. PREVACID [Concomitant]
     Indication: GASTROINTESTINAL DISORDER
     Route: 065
  4. ATENOLOL [Concomitant]
     Indication: CARDIAC DISORDER
     Route: 065

REACTIONS (2)
  - APPLICATION SITE BURN [None]
  - PRODUCT QUALITY ISSUE [None]
